FAERS Safety Report 9304817 (Version 2)
Quarter: 2013Q2

REPORT INFORMATION
  Report Type: Spontaneous
  Country: JP (occurrence: None)
  Receive Date: 20130521
  Receipt Date: 20130523
  Transmission Date: 20140414
  Serious: Yes (Other)
  Sender: FDA-Public Use
  Company Number: TCI2013A02734

PATIENT
  Age: 62 Year
  Sex: Male

DRUGS (9)
  1. ACTOS [Suspect]
     Indication: DIABETES MELLITUS
  2. FLOMOX [Suspect]
     Indication: NASOPHARYNGITIS
     Route: 048
     Dates: start: 20130413
  3. BLOPRESS (CANDESARTAN CILEXETIL) [Concomitant]
  4. LOXONIN [Suspect]
     Indication: NASOPHARYNGITIS
     Route: 048
     Dates: start: 20130413
  5. COLDRIN (CLOFEDANOL HYDROCHLORIDE) [Concomitant]
  6. MUCOSOLVAN (AMBROXOL HYDROCHLORIDE) [Concomitant]
  7. ITOROL (ISOSORBIDE MONONITRATE) [Concomitant]
  8. ISALON (ALDIOXA) [Concomitant]
  9. EICOSAPENTAENOIC ACID ETHYL ESTER [Concomitant]

REACTIONS (1)
  - Acute interstitial pneumonitis [None]
